FAERS Safety Report 6254714-1 (Version None)
Quarter: 2009Q3

REPORT INFORMATION
  Report Type: 
  Country: None (occurrence: None)
  Receive Date: 20090702
  Receipt Date: 20090622
  Transmission Date: 20100115
  Serious: Yes (Other)
  Sender: FDA-Public Use
  Company Number: JP-PFIZER INC-2009231337

PATIENT

DRUGS (1)
  1. UNASYN [Suspect]
     Route: 042

REACTIONS (2)
  - DEHYDRATION [None]
  - HYPERNATRAEMIA [None]
